FAERS Safety Report 15097813 (Version 1)
Quarter: 2018Q3

REPORT INFORMATION
  Report Type: Spontaneous
  Country: US (occurrence: US)
  Receive Date: 20180702
  Receipt Date: 20180702
  Transmission Date: 20181010
  Serious: No
  Sender: FDA-Public Use
  Company Number: US-PFM-2017-04239

PATIENT
  Age: 7 Month
  Sex: Female

DRUGS (1)
  1. HEMANGEOL [Suspect]
     Active Substance: PROPRANOLOL HYDROCHLORIDE
     Indication: PRODUCT USED FOR UNKNOWN INDICATION
     Dosage: 3.4 ML, BID (2/DAY)
     Route: 048
     Dates: start: 20161207

REACTIONS (3)
  - Nightmare [Unknown]
  - Insomnia [Unknown]
  - Sleep disorder [Recovered/Resolved]
